FAERS Safety Report 4780080-4 (Version None)
Quarter: 2005Q3

REPORT INFORMATION
  Report Type: 
  Country: None (occurrence: None)
  Receive Date: 20050914
  Receipt Date: 20050713
  Transmission Date: 20060218
  Serious: Yes (Hospitalization)
  Sender: FDA-Public Use
  Company Number: 163-20785-05070226

PATIENT
  Age: 74 Year
  Sex: Male
  Weight: 100 kg

DRUGS (12)
  1. THALOMID [Suspect]
     Indication: MULTIPLE MYELOMA
     Dosage: 50 MG, QD, ORAL; QD, ORAL
     Route: 048
     Dates: start: 20041201, end: 20041204
  2. THALOMID [Suspect]
     Indication: MULTIPLE MYELOMA
     Dosage: 50 MG, QD, ORAL; QD, ORAL
     Route: 048
     Dates: start: 20050301, end: 20050501
  3. DEXAMETHASONE [Suspect]
     Indication: MULTIPLE MYELOMA
     Dosage: 40 MG, QD, ORAL;  ORAL
     Route: 048
     Dates: start: 20041201, end: 20041204
  4. DEXAMETHASONE [Suspect]
     Indication: MULTIPLE MYELOMA
     Dosage: 40 MG, QD, ORAL;  ORAL
     Route: 048
     Dates: start: 20050301, end: 20050501
  5. BORTEZOMIB (BORTEZOMIB) [Suspect]
     Indication: MULTIPLE MYELOMA
     Dosage: 2 MG, QD, INTRAVENOUS;  INTRAVENOUS
     Route: 042
     Dates: start: 20041201, end: 20041201
  6. BORTEZOMIB (BORTEZOMIB) [Suspect]
     Indication: MULTIPLE MYELOMA
     Dosage: 2 MG, QD, INTRAVENOUS;  INTRAVENOUS
     Route: 042
     Dates: start: 20041204, end: 20041204
  7. BORTEZOMIB (BORTEZOMIB) [Suspect]
     Indication: MULTIPLE MYELOMA
     Dosage: 2 MG, QD, INTRAVENOUS;  INTRAVENOUS
     Route: 042
     Dates: start: 20041208, end: 20041208
  8. BORTEZOMIB (BORTEZOMIB) [Suspect]
     Indication: MULTIPLE MYELOMA
     Dosage: 2 MG, QD, INTRAVENOUS;  INTRAVENOUS
     Route: 042
     Dates: start: 20041211, end: 20041211
  9. CISPLATIN [Suspect]
     Indication: MULTIPLE MYELOMA
     Dosage: 15 MG, QD, ORAL
     Route: 048
     Dates: start: 20041201, end: 20041204
  10. ADRIAMYCIN PFS [Suspect]
     Indication: MULTIPLE MYELOMA
     Dosage: 15 MG, QD, ORAL
     Route: 048
     Dates: start: 20041201, end: 20041204
  11. CYCLOPHOSPHAMIDE [Suspect]
     Indication: MULTIPLE MYELOMA
     Dosage: 600 MG, QD, ORAL
     Route: 048
     Dates: start: 20041201, end: 20041204
  12. ETOPOSIDE [Suspect]
     Indication: MULTIPLE MYELOMA
     Dosage: 60 MG, QD,ORAL
     Route: 048
     Dates: start: 20041201, end: 20041204

REACTIONS (6)
  - COUGH [None]
  - MYOCARDIAL INFARCTION [None]
  - PLATELET COUNT DECREASED [None]
  - PYREXIA [None]
  - SYSTEMIC INFLAMMATORY RESPONSE SYNDROME [None]
  - WHITE BLOOD CELL COUNT DECREASED [None]
